FAERS Safety Report 9430808 (Version 1)
Quarter: 2013Q3

REPORT INFORMATION
  Report Type: Report from Study
  Country: US (occurrence: US)
  Receive Date: 20130730
  Receipt Date: 20130730
  Transmission Date: 20140515
  Serious: No
  Sender: FDA-Public Use
  Company Number: US-ABBOTT-13P-163-1109711-00

PATIENT
  Age: 52 Year
  Sex: Female
  Weight: 71.28 kg

DRUGS (12)
  1. NIASPAN (COATED) [Suspect]
     Indication: HIGH DENSITY LIPOPROTEIN DECREASED
     Dosage: AT SLEEP
  2. NIASPAN (COATED) [Suspect]
     Indication: BLOOD TRIGLYCERIDES INCREASED
  3. NIASPAN (COATED) [Suspect]
     Indication: LOW DENSITY LIPOPROTEIN INCREASED
  4. NIASPAN (COATED) [Suspect]
     Indication: BLOOD CHOLESTEROL ABNORMAL
  5. LOVAZA [Concomitant]
     Indication: PRODUCT USED FOR UNKNOWN INDICATION
  6. PRILOSEC [Concomitant]
     Indication: PRODUCT USED FOR UNKNOWN INDICATION
  7. SUDAFED [Concomitant]
     Indication: PRODUCT USED FOR UNKNOWN INDICATION
  8. ADVIL [Concomitant]
     Indication: PRODUCT USED FOR UNKNOWN INDICATION
     Dosage: EVERY MORNING
  9. UNKNOWN MEDICATION [Concomitant]
     Indication: DEPRESSION
  10. METFORMIN [Concomitant]
     Indication: PRODUCT USED FOR UNKNOWN INDICATION
  11. MULTIVITAMIN [Concomitant]
     Indication: PRODUCT USED FOR UNKNOWN INDICATION
  12. ASA [Concomitant]
     Indication: PRODUCT USED FOR UNKNOWN INDICATION
     Dosage: 81 MG

REACTIONS (5)
  - Skin tightness [Recovered/Resolved]
  - Swelling face [Recovered/Resolved]
  - Flushing [Recovered/Resolved]
  - Skin burning sensation [Not Recovered/Not Resolved]
  - Dizziness [Recovered/Resolved]
